FAERS Safety Report 11122108 (Version 1)
Quarter: 2015Q2

REPORT INFORMATION
  Report Type: Spontaneous
  Country: IT (occurrence: IT)
  Receive Date: 20150519
  Receipt Date: 20150519
  Transmission Date: 20150821
  Serious: Yes (Other)
  Sender: FDA-Public Use
  Company Number: PHHY2015IT059548

PATIENT
  Age: 78 Year
  Sex: Female

DRUGS (3)
  1. TASIGNA [Suspect]
     Active Substance: NILOTINIB
     Dosage: 450 MG QD (150 MG X 3 DAY)
     Route: 065
     Dates: start: 20150415, end: 20150506
  2. ESOMEPRAZOL//ESOMEPRAZOLE [Concomitant]
     Indication: PRODUCT USED FOR UNKNOWN INDICATION
     Dosage: 40 MG QD
     Route: 065
  3. TASIGNA [Suspect]
     Active Substance: NILOTINIB
     Indication: CHRONIC MYELOID LEUKAEMIA
     Dosage: 600 MG, QD (150 X 2 MG IN THE MORNING AND 150 X 2 IN THE EVENING)
     Route: 065
     Dates: start: 20141010, end: 20150325

REACTIONS (4)
  - Blood alkaline phosphatase increased [Unknown]
  - Intestinal perforation [Unknown]
  - Transaminases increased [Unknown]
  - Gamma-glutamyltransferase increased [Unknown]

NARRATIVE: CASE EVENT DATE: 20150315
